FAERS Safety Report 24683599 (Version 1)
Quarter: 2024Q4

REPORT INFORMATION
  Report Type: Spontaneous
  Country: CN (occurrence: CN)
  Receive Date: 20241202
  Receipt Date: 20241202
  Transmission Date: 20250115
  Serious: Yes (Hospitalization)
  Sender: NOVO NORDISK
  Company Number: CN-NOVOPROD-1322695

PATIENT
  Age: 47 Year
  Sex: Male
  Weight: 95 kg

DRUGS (4)
  1. INSULIN ASPART [Suspect]
     Active Substance: INSULIN ASPART
     Indication: Type 2 diabetes mellitus
     Dosage: 20 IU, BID(MORNING AND EVENING, ABDOMINAL INJECTION)
     Dates: end: 202205
  2. METFORMIN [Concomitant]
     Active Substance: METFORMIN HYDROCHLORIDE
     Indication: Product used for unknown indication
     Dosage: ONE TABLET IN THE MORNING AND ONE TABLET IN THE EVENING AND STOPPED TAKING IT WHEN DISCHARGED
     Dates: start: 202205
  3. ASPIRIN [Concomitant]
     Active Substance: ASPIRIN
     Indication: Product used for unknown indication
     Dosage: OCCASIONALLY TOOK ONE TABLET PER DAY
  4. ATORVASTATIN CALCIUM [Concomitant]
     Active Substance: ATORVASTATIN CALCIUM
     Indication: Product used for unknown indication
     Dosage: OCCASIONALLY TOOK ONE TABLET PER DAY

REACTIONS (2)
  - Macular oedema [Not Recovered/Not Resolved]
  - Prescription drug used without a prescription [Recovered/Resolved]

NARRATIVE: CASE EVENT DATE: 20220501
